FAERS Safety Report 5477544-7 (Version None)
Quarter: 2007Q4

REPORT INFORMATION
  Report Type: 
  Country: None (occurrence: None)
  Receive Date: 20071002
  Receipt Date: 20070917
  Transmission Date: 20080405
  Serious: Yes (Other)
  Sender: FDA-Public Use
  Company Number: 2006RR-02419

PATIENT
  Age: 64 Year
  Sex: Female

DRUGS (3)
  1. ENALAPRIL MALEATE [Suspect]
     Indication: HYPERTENSION
     Dosage: 10 MG, QD
  2. HYDROCHLOROTHIAZIDE [Concomitant]
  3. SPIRONOLACTONE [Concomitant]

REACTIONS (5)
  - COUGH [None]
  - NASAL CONGESTION [None]
  - SLEEP APNOEA SYNDROME [None]
  - SNORING [None]
  - SOMNOLENCE [None]
